FAERS Safety Report 24680366 (Version 1)
Quarter: 2024Q4

REPORT INFORMATION
  Report Type: Spontaneous
  Country: US (occurrence: US)
  Receive Date: 20241129
  Receipt Date: 20241129
  Transmission Date: 20250114
  Serious: Yes (Other)
  Sender: BRACCO
  Company Number: US-BRACCO-2024US03418

PATIENT
  Age: 51 Year
  Sex: Male

DRUGS (11)
  1. LUMASON [Suspect]
     Active Substance: SULFUR HEXAFLUORIDE
     Indication: Echocardiogram
     Dosage: 0.5 ML, SINGLE
     Route: 013
     Dates: start: 20240524, end: 20240524
  2. LUMASON [Suspect]
     Active Substance: SULFUR HEXAFLUORIDE
     Indication: Echocardiogram
     Dosage: 0.5 ML, SINGLE
     Route: 013
     Dates: start: 20240524, end: 20240524
  3. LUMASON [Suspect]
     Active Substance: SULFUR HEXAFLUORIDE
     Indication: Echocardiogram
     Dosage: 0.5 ML, SINGLE
     Route: 013
     Dates: start: 20240524, end: 20240524
  4. AMIODARONE HYDROCHLORIDE [Concomitant]
     Active Substance: AMIODARONE HYDROCHLORIDE
  5. BUMETANIDE [Concomitant]
     Active Substance: BUMETANIDE
  6. DILTIAZEM [Concomitant]
     Active Substance: DILTIAZEM
  7. INSULIN NOS [Concomitant]
     Active Substance: INSULIN NOS
  8. INVOKANA [Concomitant]
     Active Substance: CANAGLIFLOZIN
  9. METHIMAZOLE [Concomitant]
     Active Substance: METHIMAZOLE
  10. METOPROLOL [Concomitant]
     Active Substance: METOPROLOL
  11. XARELTO [Concomitant]
     Active Substance: RIVAROXABAN

REACTIONS (1)
  - Seizure like phenomena [Recovered/Resolved]

NARRATIVE: CASE EVENT DATE: 20240524
